FAERS Safety Report 8478238-6 (Version None)
Quarter: 2012Q2

REPORT INFORMATION
  Report Type: 
  Country: None (occurrence: None)
  Receive Date: 20120629
  Receipt Date: 20120626
  Transmission Date: 20120825
  Serious: No
  Sender: FDA-Public Use
  Company Number: US-BAYER-2012-064010

PATIENT
  Age: 75 Year
  Sex: Female
  Weight: 77 kg

DRUGS (6)
  1. TOPROL-XL [Concomitant]
  2. CALCIUM [Concomitant]
  3. ALEVE (CAPLET) [Suspect]
     Dosage: 1 DF, PRN
     Dates: start: 20120201
  4. MULTI-VITAMINS [Concomitant]
  5. GLUCOSAMINE W/CHONDROITIN SULFATE [Concomitant]
  6. ASPIRIN [Concomitant]

REACTIONS (1)
  - NO ADVERSE EVENT [None]
